FAERS Safety Report 4864230-7 (Version None)
Quarter: 2005Q4

REPORT INFORMATION
  Report Type: 
  Country: None (occurrence: None)
  Receive Date: 20051220
  Receipt Date: 20051220
  Transmission Date: 20060501
  Serious: Yes (Disabling)
  Sender: FDA-Public Use
  Company Number: None

PATIENT
  Sex: Female

DRUGS (1)
  1. OMNIPAQUE 300 [Suspect]
     Indication: SCAN WITH CONTRAST
     Dosage: 150 ML  ONE TIME  IV BOLUS
     Route: 040
     Dates: start: 20051130, end: 20051130

REACTIONS (2)
  - ADVERSE DRUG REACTION [None]
  - OBSTRUCTIVE AIRWAYS DISORDER [None]
